FAERS Safety Report 15339265 (Version 1)
Quarter: 2018Q3

REPORT INFORMATION
  Report Type: Spontaneous
  Country: CN (occurrence: CN)
  Receive Date: 20180831
  Receipt Date: 20180831
  Transmission Date: 20181010
  Serious: Yes (Other)
  Sender: FDA-Public Use
  Company Number: CN-009507513-1805CHN014099

PATIENT
  Age: 26 Year
  Sex: Female

DRUGS (1)
  1. INTERFERON ALFA?2B [Suspect]
     Active Substance: INTERFERON ALFA-2B
     Indication: ANOGENITAL WARTS
     Dosage: UNK
     Route: 030
     Dates: start: 20130501

REACTIONS (8)
  - Cold urticaria [Recovered/Resolved]
  - Pallor [Recovered/Resolved]
  - Seizure [Recovered/Resolved]
  - Discomfort [Recovered/Resolved]
  - Dyspnoea [Recovered/Resolved]
  - Off label use [Unknown]
  - Pyrexia [Recovered/Resolved]
  - Chest discomfort [Recovered/Resolved]

NARRATIVE: CASE EVENT DATE: 20130501
